FAERS Safety Report 7333409-7 (Version None)
Quarter: 2011Q1

REPORT INFORMATION
  Report Type: 
  Country: None (occurrence: None)
  Receive Date: 20110304
  Receipt Date: 20110222
  Transmission Date: 20110831
  Serious: Yes (Hospitalization)
  Sender: FDA-Public Use
  Company Number: US-CELGENEUS-163-CCAZA-11021762

PATIENT
  Age: 39 Year
  Sex: Male
  Weight: 67 kg

DRUGS (9)
  1. PHENERGAN [Concomitant]
     Route: 065
  2. CYCLOPHOSPHAMIDE [Suspect]
     Indication: MYCOSIS FUNGOIDES
     Route: 065
     Dates: start: 20110126, end: 20110129
  3. MORPHINE [Concomitant]
     Route: 065
  4. AZACITIDINE [Suspect]
     Indication: MYCOSIS FUNGOIDES
     Dosage: 25 MILLIGRAM/SQ. METER
     Route: 051
     Dates: start: 20110121, end: 20110125
  5. VINCRISTINE [Suspect]
     Indication: MYCOSIS FUNGOIDES
     Route: 065
     Dates: start: 20110128, end: 20110128
  6. CIPROFLOXACIN [Concomitant]
     Route: 065
  7. OXYCODONE [Concomitant]
     Route: 065
  8. CELEXA [Concomitant]
     Route: 065
  9. MS CONTIN [Concomitant]
     Route: 065

REACTIONS (4)
  - DEHYDRATION [None]
  - HYPOTENSION [None]
  - FAILURE TO THRIVE [None]
  - PAIN [None]
